FAERS Safety Report 10505121 (Version 2)
Quarter: 2015Q3

REPORT INFORMATION
  Report Type: Spontaneous
  Country: US (occurrence: US)
  Receive Date: 20140926
  Receipt Date: 20150930
  Transmission Date: 20151125
  Serious: Yes (Other)
  Sender: FDA-Public Use
  Company Number: US-MDCO-14-00084

PATIENT
  Age: 83 Year
  Sex: Female

DRUGS (5)
  1. CLEVIPREX [Suspect]
     Active Substance: CLEVIDIPINE
     Indication: MALIGNANT HYPERTENSION
     Dosage: 3 MG/HR (INITIAL)
     Route: 041
     Dates: end: 20131019
  2. CLEVIPREX [Suspect]
     Active Substance: CLEVIDIPINE
     Dosage: 12 MG/HR
     Route: 041
     Dates: start: 20130119, end: 20130120
  3. CLEVIPREX [Suspect]
     Active Substance: CLEVIDIPINE
     Dosage: TAPERED DOWN
     Route: 041
     Dates: start: 20131020
  4. HALOPERIDOL. [Concomitant]
     Active Substance: HALOPERIDOL
     Indication: PRODUCT USED FOR UNKNOWN INDICATION
     Dosage: NOT REPORTED
  5. CLEVIPREX [Suspect]
     Active Substance: CLEVIDIPINE
     Dosage: 6 MG/HR
     Route: 041
     Dates: start: 20131019, end: 20131019

REACTIONS (1)
  - Atrial fibrillation [Recovered/Resolved]

NARRATIVE: CASE EVENT DATE: 20131019
